FAERS Safety Report 4605681-5 (Version None)
Quarter: 2005Q1

REPORT INFORMATION
  Report Type: 
  Country: None (occurrence: None)
  Receive Date: 20050310
  Receipt Date: 20050120
  Transmission Date: 20050727
  Serious: No
  Sender: FDA-Public Use
  Company Number: US-BRISTOL-MYERS SQUIBB COMPANY-12836599

PATIENT
  Age: 35 Year
  Sex: Female

DRUGS (3)
  1. MONISTAT [Suspect]
     Route: 067
     Dates: start: 20050119, end: 20050119
  2. DILANTIN [Concomitant]
  3. NEURONTIN [Concomitant]

REACTIONS (2)
  - VAGINAL BURNING SENSATION [None]
  - VAGINAL DISCHARGE [None]
